FAERS Safety Report 12473338 (Version 2)
Quarter: 2016Q2

REPORT INFORMATION
  Report Type: Spontaneous
  Country: FR (occurrence: FR)
  Receive Date: 20160616
  Receipt Date: 20160627
  Transmission Date: 20160815
  Serious: No
  Sender: FDA-Public Use
  Company Number: FR-SEATTLE GENETICS-2016SGN00949

PATIENT

DRUGS (2)
  1. ADCETRIS [Suspect]
     Active Substance: BRENTUXIMAB VEDOTIN
     Indication: HODGKIN^S DISEASE NODULAR SCLEROSIS
     Dosage: 1.8 MG/KG, UNK
     Route: 042
     Dates: start: 201411
  2. BENDAMUSTINE HYDROCHLORIDE. [Suspect]
     Active Substance: BENDAMUSTINE HYDROCHLORIDE
     Indication: HODGKIN^S DISEASE NODULAR SCLEROSIS
     Dosage: 90 MG/M2, UNK
     Route: 042
     Dates: start: 201306

REACTIONS (2)
  - Remission not achieved [Unknown]
  - Off label use [Unknown]
